FAERS Safety Report 5391892-0 (Version None)
Quarter: 2007Q3

REPORT INFORMATION
  Report Type: 
  Country: None (occurrence: None)
  Receive Date: 20070720
  Receipt Date: 20070716
  Transmission Date: 20080115
  Serious: Yes (Other)
  Sender: FDA-Public Use
  Company Number: US-JNJFOC-20070703413

PATIENT
  Age: 38 Year
  Sex: Male

DRUGS (3)
  1. REOPRO [Suspect]
     Dosage: UNSPECIFIED INFUSION
     Route: 042
  2. REOPRO [Suspect]
     Indication: PERCUTANEOUS CORONARY INTERVENTION
     Route: 042
  3. HEPARIN [Concomitant]

REACTIONS (1)
  - SCROTAL SWELLING [None]
